FAERS Safety Report 9478001 (Version 1)
Quarter: 2013Q3

REPORT INFORMATION
  Report Type: Spontaneous
  Country: US (occurrence: None)
  Receive Date: 20130822
  Receipt Date: 20130822
  Transmission Date: 20140515
  Serious: Yes (Other)
  Sender: FDA-Public Use
  Company Number: 2013-370

PATIENT
  Age: 23 Year
  Sex: Male

DRUGS (3)
  1. FAZACLO [Suspect]
     Indication: BIPOLAR DISORDER
     Route: 048
     Dates: start: 2008
  2. LITHIUM (LITHIUM CARBONATE) TABLET, 300MG [Concomitant]
  3. KLONOPIN (CLONAZEPAM) (TABLETS) [Concomitant]

REACTIONS (2)
  - Penile operation [None]
  - Priapism [None]
